FAERS Safety Report 14686178 (Version 1)
Quarter: 2018Q1

REPORT INFORMATION
  Report Type: Spontaneous
  Country: CA (occurrence: CA)
  Receive Date: 20180326
  Receipt Date: 20180326
  Transmission Date: 20180509
  Serious: Yes (Disabling)
  Sender: FDA-Public Use
  Company Number: None

PATIENT
  Age: 40 Year
  Sex: Female
  Weight: 58.5 kg

DRUGS (8)
  1. OMEGA 3 [Concomitant]
     Active Substance: OMEGA-3 FATTY ACIDS
  2. PROTOPIC [Suspect]
     Active Substance: TACROLIMUS
  3. BIOTHY [Concomitant]
  4. VITAMIN C [Concomitant]
     Active Substance: ASCORBIC ACID
  5. PROBIOTICS [Concomitant]
     Active Substance: PROBIOTICS NOS
  6. CORTODERM 1% HYDROCORTISONE [Suspect]
     Active Substance: HYDROCORTISONE
     Indication: ECZEMA
     Dates: start: 19850301, end: 20180101
  7. SUBOXONE [Concomitant]
     Active Substance: BUPRENORPHINE HYDROCHLORIDE\NALOXONE HYDROCHLORIDE
  8. VITAMIN B12 [Concomitant]
     Active Substance: CYANOCOBALAMIN

REACTIONS (7)
  - Dermatitis [None]
  - Skin exfoliation [None]
  - Dry skin [None]
  - Skin fissures [None]
  - Steroid withdrawal syndrome [None]
  - Secretion discharge [None]
  - Burning sensation [None]

NARRATIVE: CASE EVENT DATE: 20160102
